FAERS Safety Report 6024585-7 (Version None)
Quarter: 2008Q4

REPORT INFORMATION
  Report Type: 
  Country: None (occurrence: None)
  Receive Date: 20081231
  Receipt Date: 20081111
  Transmission Date: 20090506
  Serious: No
  Sender: FDA-Public Use
  Company Number: US-BRISTOL-MYERS SQUIBB COMPANY-14402135

PATIENT
  Age: 62 Year
  Sex: Female
  Weight: 93 kg

DRUGS (10)
  1. ORENCIA [Suspect]
     Indication: RHEUMATOID ARTHRITIS
     Dates: start: 20070801
  2. CRESTOR [Concomitant]
  3. TRICOR [Concomitant]
  4. ALLEGRA D 24 HOUR [Concomitant]
  5. NOVOLOG [Concomitant]
     Dosage: 1 DOSAGE FORM= 70/30.UNITS NOT SPECIFIED
  6. HUMALOG [Concomitant]
  7. POTASSIUM CHLORIDE [Concomitant]
  8. ACIPHEX [Concomitant]
  9. TOPROL-XL [Concomitant]
  10. ALEVE [Concomitant]

REACTIONS (2)
  - BLOOD GLUCOSE INCREASED [None]
  - MIGRAINE [None]
